FAERS Safety Report 7250834-3 (Version None)
Quarter: 2011Q1

REPORT INFORMATION
  Report Type: 
  Country: None (occurrence: None)
  Receive Date: 20110128
  Receipt Date: 20110119
  Transmission Date: 20110831
  Serious: Yes (Hospitalization, Other)
  Sender: FDA-Public Use
  Company Number: US-JNJFOC-20101100331

PATIENT
  Sex: Male

DRUGS (4)
  1. CIPROFLOXACIN [Suspect]
     Indication: INFECTION
     Route: 048
  2. CIPROFLOXACIN [Suspect]
     Route: 048
  3. LEVAQUIN [Suspect]
     Indication: URINARY TRACT INFECTION
     Route: 048
  4. CIPROFLOXACIN [Suspect]
     Route: 048

REACTIONS (3)
  - EPICONDYLITIS [None]
  - ROTATOR CUFF SYNDROME [None]
  - MUSCLE RUPTURE [None]
